FAERS Safety Report 9747988 (Version 1)
Quarter: 2013Q4

REPORT INFORMATION
  Report Type: Spontaneous
  Country: US (occurrence: None)
  Receive Date: 20131211
  Receipt Date: 20131211
  Transmission Date: 20140711
  Serious: Yes (Other)
  Sender: FDA-Public Use
  Company Number: None

PATIENT
  Sex: Male
  Weight: 74.84 kg

DRUGS (9)
  1. VERAPAMIL [Suspect]
     Indication: HYPERTENSION
     Route: 048
     Dates: start: 1990, end: 201307
  2. CYCLOSPORINE [Concomitant]
  3. PREDINISONE [Concomitant]
  4. DIOVAN [Concomitant]
  5. ALLOPURINOL [Concomitant]
  6. METROPOLOL [Concomitant]
  7. FISH OIL [Concomitant]
  8. VITAMIN D [Concomitant]
  9. ASPIRIN [Concomitant]

REACTIONS (2)
  - Extra dose administered [None]
  - Prostate cancer [None]
